FAERS Safety Report 15861883 (Version 2)
Quarter: 2019Q3

REPORT INFORMATION
  Report Type: Spontaneous
  Country: US (occurrence: US)
  Receive Date: 20190124
  Receipt Date: 20190703
  Transmission Date: 20191004
  Serious: No
  Sender: FDA-Public Use
  Company Number: US-PFIZER INC-2019025921

PATIENT
  Sex: Male
  Weight: 115 kg

DRUGS (10)
  1. AMOXICILLIN. [Suspect]
     Active Substance: AMOXICILLIN
     Dosage: UNK
  2. FOSINOPRIL [Suspect]
     Active Substance: FOSINOPRIL
     Dosage: UNK
  3. ZOLPIDEM [Suspect]
     Active Substance: ZOLPIDEM TARTRATE
     Dosage: UNK
  4. ERYTHROMYCIN. [Suspect]
     Active Substance: ERYTHROMYCIN
     Dosage: UNK
  5. ROCEPHIN [Suspect]
     Active Substance: CEFTRIAXONE SODIUM
     Dosage: UNK
  6. MONOPRIL [Suspect]
     Active Substance: FOSINOPRIL SODIUM
     Dosage: UNK
  7. CEFTRIAXONE SODIUM. [Suspect]
     Active Substance: CEFTRIAXONE SODIUM
     Dosage: UNK
  8. SULFAMETHOXAZOLE/TRIMETHOPRIM [Suspect]
     Active Substance: SULFAMETHOXAZOLE\TRIMETHOPRIM
     Dosage: UNK
  9. OPTIRAY 320 [Suspect]
     Active Substance: IOVERSOL
     Dosage: UNK
  10. NITROGLYCERIN. [Suspect]
     Active Substance: NITROGLYCERIN
     Dosage: UNK
     Route: 060

REACTIONS (1)
  - Drug hypersensitivity [Unknown]
